FAERS Safety Report 8595151-4 (Version None)
Quarter: 2012Q3

REPORT INFORMATION
  Report Type: 
  Country: None (occurrence: None)
  Receive Date: 20120815
  Receipt Date: 20120806
  Transmission Date: 20120928
  Serious: Yes (Other)
  Sender: FDA-Public Use
  Company Number: CN-ASTRAZENECA-2012SE56961

PATIENT
  Sex: Female
  Weight: 50 kg

DRUGS (1)
  1. PULMICORT [Suspect]
     Indication: LARYNGITIS
     Dosage: 1 PIECE DAILY
     Route: 055
     Dates: start: 20100323, end: 20100323

REACTIONS (4)
  - DIZZINESS [None]
  - PALLOR [None]
  - VOMITING [None]
  - LIP DRY [None]
